FAERS Safety Report 4413560-1 (Version None)
Quarter: 2004Q2

REPORT INFORMATION
  Report Type: 
  Country: None (occurrence: None)
  Receive Date: 20040630
  Receipt Date: 20040309
  Transmission Date: 20050107
  Serious: No
  Sender: FDA-Public Use
  Company Number: 04P-163-0252944-00

PATIENT
  Age: 48 Year
  Sex: Female
  Weight: 64.8644 kg

DRUGS (11)
  1. HUMIRA [Suspect]
     Indication: RHEUMATOID ARTHRITIS
     Dosage: 40 MG, 1 IN 2 WK, SUBCUTANEOUS
     Route: 058
     Dates: start: 20040213, end: 20040308
  2. CLOPIDOGREL BISULFATE [Concomitant]
  3. PANTOPRAZOLE [Concomitant]
  4. BUCINDOLOL [Concomitant]
  5. ATORVASTATIN CALCIUM [Concomitant]
  6. BUPROPION HYDROCHLORIDE [Concomitant]
  7. FLUOXETINE HCL [Concomitant]
  8. PREDNISONE TAB [Concomitant]
  9. ALENDRONATE SODIUM [Concomitant]
  10. CALCIUM [Concomitant]
  11. ASPIRIN [Concomitant]

REACTIONS (1)
  - TONSILLITIS [None]
